FAERS Safety Report 13564418 (Version 1)
Quarter: 2017Q2

REPORT INFORMATION
  Report Type: Spontaneous
  Country: US (occurrence: US)
  Receive Date: 20170519
  Receipt Date: 20170519
  Transmission Date: 20170830
  Serious: No
  Sender: FDA-Public Use
  Company Number: US-BRISTOL-MYERS SQUIBB COMPANY-BMS-2017-041989

PATIENT
  Age: 48 Year

DRUGS (1)
  1. ABILIFY [Suspect]
     Active Substance: ARIPIPRAZOLE
     Indication: BIPOLAR DISORDER
     Dosage: UNK
     Route: 065
     Dates: start: 20040505, end: 20140513

REACTIONS (5)
  - Impulsive behaviour [Unknown]
  - Gambling disorder [Unknown]
  - Obsessive-compulsive disorder [Unknown]
  - Weight increased [Unknown]
  - Psychosexual disorder [Unknown]

NARRATIVE: CASE EVENT DATE: 20080421
